FAERS Safety Report 13672517 (Version 2)
Quarter: 2017Q3

REPORT INFORMATION
  Report Type: Spontaneous
  Country: FR (occurrence: FR)
  Receive Date: 20170621
  Receipt Date: 20170810
  Transmission Date: 20171127
  Serious: Yes (Other)
  Sender: FDA-Public Use
  Company Number: FR-BAYER-2017-116441

PATIENT
  Age: 30 Year
  Sex: Female
  Weight: 78 kg

DRUGS (1)
  1. MIRENA [Suspect]
     Active Substance: LEVONORGESTREL
     Indication: CHEMICAL CONTRACEPTION
     Dosage: 20 MCG/24HR, CONT
     Route: 015
     Dates: start: 20170320, end: 20170509

REACTIONS (13)
  - Weight increased [Recovered/Resolved]
  - Hair growth abnormal [Recovered/Resolved]
  - Depressed mood [Recovered/Resolved]
  - Sleep disorder [Recovered/Resolved]
  - Constipation [Recovered/Resolved]
  - Acne [Recovered/Resolved]
  - Anxiety [Recovered/Resolved]
  - Hypertrichosis [Recovered/Resolved]
  - Fatigue [Recovering/Resolving]
  - Neck pain [Recovered/Resolved]
  - Impatience [Recovered/Resolved]
  - Back pain [Recovered/Resolved]
  - Abdominal distension [Recovered/Resolved]

NARRATIVE: CASE EVENT DATE: 20170410
